FAERS Safety Report 9582976 (Version 1)
Quarter: 2013Q4

REPORT INFORMATION
  Report Type: Spontaneous
  Country: US (occurrence: US)
  Receive Date: 20131002
  Receipt Date: 20131002
  Transmission Date: 20140711
  Serious: No
  Sender: FDA-Public Use
  Company Number: US-AMGEN-USASP2013044867

PATIENT
  Age: 54 Year
  Sex: Male
  Weight: 68.48 kg

DRUGS (10)
  1. ENBREL [Suspect]
     Indication: RHEUMATOID ARTHRITIS
     Dosage: 50 MG, ONCE A WEEK
     Route: 058
  2. VITAMIN D                          /00107901/ [Concomitant]
     Dosage: 1000 UNIT, UNK
  3. MORPHINE SULPHATE [Concomitant]
     Dosage: 60 MG ER, UNK
  4. ZANAFLEX [Concomitant]
     Dosage: 4 MG, UNK
  5. GABAPENTIN [Concomitant]
     Dosage: 800 MG, UNK
  6. CYMBALTA [Concomitant]
     Dosage: 60 MG, UNK
  7. METHOTREXATE [Concomitant]
     Dosage: 2.5 MG, UNK
  8. FOLIC ACID [Concomitant]
     Dosage: 1 MG, UNK
  9. IBUPROFEN [Concomitant]
     Dosage: 200 MG, UNK
  10. LAXATIVES [Concomitant]
     Dosage: UNK

REACTIONS (2)
  - Influenza like illness [Unknown]
  - Diarrhoea [Unknown]
